FAERS Safety Report 9517230 (Version 2)
Quarter: 2013Q4

REPORT INFORMATION
  Report Type: Report from Study
  Country: FR (occurrence: FR)
  Receive Date: 20130911
  Receipt Date: 20131024
  Transmission Date: 20140711
  Serious: Yes (Life-Threatening, Hospitalization)
  Sender: FDA-Public Use
  Company Number: FR-CELGENEUS-056-21880-13090763

PATIENT
  Age: 61 Year
  Sex: Male
  Weight: 108 kg

DRUGS (15)
  1. REVLIMID\PLACEBO [Suspect]
     Indication: DIFFUSE LARGE B-CELL LYMPHOMA
     Route: 048
     Dates: start: 20130318
  2. REVLIMID\PLACEBO [Suspect]
     Dosage: 15 MILLIGRAM
     Route: 048
     Dates: start: 20130606, end: 20130624
  3. LERCANIDIPINE [Concomitant]
     Indication: HYPERTENSION
     Route: 065
     Dates: start: 1994
  4. PERINDOPRIL ARGININE [Concomitant]
     Indication: HYPERTENSION
     Route: 065
     Dates: start: 1994
  5. BISOPROLOL [Concomitant]
     Indication: HYPERTENSION
     Route: 065
     Dates: start: 1994
  6. ROSUVASTATIN CALCIUM [Concomitant]
     Indication: HYPERCHOLESTEROLAEMIA
     Route: 065
     Dates: start: 1996
  7. LAMIVUDINE [Concomitant]
     Indication: HEPATITIS B
     Route: 065
     Dates: start: 20120810
  8. HYDROCORTISONE [Concomitant]
     Indication: ADRENAL INSUFFICIENCY
     Route: 065
     Dates: start: 20120807
  9. FUROSEMIDE [Concomitant]
     Indication: HYPERTENSION
     Route: 065
     Dates: start: 20120811
  10. OMEPRAZOLE [Concomitant]
     Indication: PROPHYLAXIS
     Route: 065
     Dates: start: 20120811
  11. FOLIC ACID [Concomitant]
     Indication: INFECTION PROPHYLAXIS
     Route: 065
     Dates: start: 20120810
  12. VALACICLOVIR [Concomitant]
     Indication: INFECTION PROPHYLAXIS
     Route: 065
     Dates: start: 20120810
  13. INSULIN [Concomitant]
     Indication: DIABETES MELLITUS
     Route: 065
     Dates: start: 1992
  14. FLUDROCORTISONE [Concomitant]
     Indication: ADRENAL INSUFFICIENCY
     Route: 065
     Dates: start: 20121119
  15. SULFAMETHAZOLE TRIMETHOPRIME [Concomitant]
     Indication: PROPHYLAXIS
     Route: 065
     Dates: start: 20120810

REACTIONS (3)
  - Septic shock [Recovered/Resolved]
  - Lung infection [Recovered/Resolved]
  - Neutropenia [Recovered/Resolved]
